FAERS Safety Report 18318703 (Version 1)
Quarter: 2020Q3

REPORT INFORMATION
  Report Type: Spontaneous
  Country: IR (occurrence: IR)
  Receive Date: 20200928
  Receipt Date: 20200928
  Transmission Date: 20201103
  Serious: Yes (Other)
  Sender: FDA-Public Use
  Company Number: IR-LUPIN PHARMACEUTICALS INC.-2020-06469

PATIENT
  Age: 10 Year
  Sex: Male

DRUGS (2)
  1. IMATINIB MESYLATE. [Suspect]
     Active Substance: IMATINIB MESYLATE
     Indication: CHRONIC MYELOID LEUKAEMIA
     Dosage: 300 MILLIGRAM, QD (340 MG/M2 (I.E. 300 MG/DAY))
     Route: 065
  2. IMATINIB MESYLATE. [Suspect]
     Active Substance: IMATINIB MESYLATE
     Dosage: UNK (RESTARTED WITH LOWER DOSE)
     Route: 065

REACTIONS (3)
  - Periorbital oedema [Recovered/Resolved]
  - Muscle spasms [Recovered/Resolved]
  - Myelosuppression [Recovered/Resolved]
